FAERS Safety Report 4487579-9 (Version None)
Quarter: 2004Q4

REPORT INFORMATION
  Report Type: 
  Country: None (occurrence: None)
  Receive Date: 20041027
  Receipt Date: 20041027
  Transmission Date: 20050328
  Serious: Yes (Hospitalization)
  Sender: FDA-Public Use
  Company Number: None

PATIENT
  Age: 78 Year
  Sex: Female
  Weight: 55.3388 kg

DRUGS (5)
  1. XELODA [Suspect]
     Indication: BREAST CANCER
     Dosage: 800MG/M2   BID QD X 14D   ORAL
     Route: 048
     Dates: start: 20040915, end: 20041018
  2. TAXOTERE [Suspect]
     Indication: BREAST CANCER
     Dosage: 30MG/M2   D1,D8 Q 21D   INTRAVENOU
     Route: 042
     Dates: start: 20040915, end: 20041013
  3. PHENERGAN [Concomitant]
  4. PARAGORIC [Concomitant]
  5. IMODIUM [Concomitant]

REACTIONS (1)
  - POST PROCEDURAL DIARRHOEA [None]
